FAERS Safety Report 10137205 (Version 1)
Quarter: 2014Q2

REPORT INFORMATION
  Report Type: Report from Study
  Country: US (occurrence: US)
  Receive Date: 20140429
  Receipt Date: 20140429
  Transmission Date: 20141212
  Serious: No
  Sender: FDA-Public Use
  Company Number: US-ABBVIE-14P-163-1215382-00

PATIENT
  Age: 65 Year
  Sex: Male
  Weight: 79.45 kg

DRUGS (13)
  1. ANDROGEL [Suspect]
     Indication: PRODUCT USED FOR UNKNOWN INDICATION
     Dosage: 1 PUMP DAILY
     Route: 061
     Dates: start: 20140220, end: 20140228
  2. ANDROGEL [Suspect]
     Dosage: 2 PUMP DAILY
     Route: 061
     Dates: start: 20140228, end: 20140311
  3. ANDROGEL [Suspect]
     Dosage: 4 PUMPS DAILY
     Route: 061
     Dates: start: 20140311, end: 20140320
  4. ANDROGEL [Suspect]
     Dosage: 5 PUMPS DAILY
     Route: 061
     Dates: start: 20140320
  5. METFORMIN [Concomitant]
     Indication: PRODUCT USED FOR UNKNOWN INDICATION
     Dates: start: 201310
  6. LISINOPRIL [Concomitant]
     Indication: PRODUCT USED FOR UNKNOWN INDICATION
  7. PRAVASTATIN [Concomitant]
     Indication: PRODUCT USED FOR UNKNOWN INDICATION
  8. CARVEDILOL [Concomitant]
     Indication: PRODUCT USED FOR UNKNOWN INDICATION
  9. CLOPIDOGREL [Concomitant]
     Indication: PRODUCT USED FOR UNKNOWN INDICATION
  10. BENADRYL [Concomitant]
     Indication: RASH
     Dates: start: 201401
  11. PREDNISONE [Concomitant]
     Indication: RASH
     Dates: start: 201401
  12. CLOBETASOL [Concomitant]
     Indication: RASH
     Dates: start: 201401
  13. HYDROXYZINE [Concomitant]
     Indication: RASH
     Dates: start: 201401

REACTIONS (2)
  - Blood testosterone abnormal [Not Recovered/Not Resolved]
  - Weight increased [Not Recovered/Not Resolved]
